FAERS Safety Report 19426985 (Version 1)
Quarter: 2021Q2

REPORT INFORMATION
  Report Type: Report from Study
  Country: JP (occurrence: JP)
  Receive Date: 20210617
  Receipt Date: 20210617
  Transmission Date: 20210717
  Serious: Yes (Other)
  Sender: FDA-Public Use
  Company Number: JP-AUROBINDO-AUR-APL-2021-025666

PATIENT
  Age: 80 Year
  Sex: Male
  Weight: 56.6 kg

DRUGS (27)
  1. FOLOTYN [Suspect]
     Active Substance: PRALATREXATE
     Dosage: 24 MILLIGRAM/SQ. METER, DAILY
     Route: 042
     Dates: start: 20200514, end: 20200514
  2. FOLOTYN [Suspect]
     Active Substance: PRALATREXATE
     Dosage: 24 MILLIGRAM/SQ. METER, DAILY
     Route: 042
     Dates: start: 20200611, end: 20200611
  3. FOLOTYN [Suspect]
     Active Substance: PRALATREXATE
     Dosage: 24 MILLIGRAM/SQ. METER, DAILY
     Route: 042
     Dates: start: 20200901, end: 20200901
  4. FOLOTYN [Suspect]
     Active Substance: PRALATREXATE
     Dosage: 24 MILLIGRAM/SQ. METER, DAILY
     Route: 042
     Dates: start: 20200421, end: 20200421
  5. FOLOTYN [Suspect]
     Active Substance: PRALATREXATE
     Dosage: 24 MILLIGRAM/SQ. METER, DAILY
     Route: 042
     Dates: start: 20200818, end: 20200818
  6. FOLOTYN [Suspect]
     Active Substance: PRALATREXATE
     Dosage: 24 MILLIGRAM/SQ. METER, DAILY
     Route: 042
     Dates: start: 20200929, end: 20200929
  7. FOLOTYN [Suspect]
     Active Substance: PRALATREXATE
     Dosage: 24 MILLIGRAM/SQ. METER, DAILY
     Route: 042
     Dates: start: 20201124, end: 20201124
  8. FOLOTYN [Suspect]
     Active Substance: PRALATREXATE
     Dosage: 24 MILLIGRAM/SQ. METER, DAILY
     Route: 042
     Dates: start: 20201222, end: 20201222
  9. VITAMIN B12 [Concomitant]
     Active Substance: CYANOCOBALAMIN
     Indication: PRODUCT USED FOR UNKNOWN INDICATION
     Dosage: UNK
     Route: 065
     Dates: start: 20191029
  10. FOLIC ACID. [Concomitant]
     Active Substance: FOLIC ACID
     Indication: PRODUCT USED FOR UNKNOWN INDICATION
     Dosage: UNK
     Route: 065
     Dates: start: 20191029
  11. PREDNISOLONE. [Concomitant]
     Active Substance: PREDNISOLONE
     Indication: PRODUCT USED FOR UNKNOWN INDICATION
     Dosage: UNK
     Route: 065
     Dates: start: 20200225, end: 20200428
  12. FOLOTYN [Suspect]
     Active Substance: PRALATREXATE
     Dosage: 24 MILLIGRAM/SQ. METER, DAILY
     Route: 042
     Dates: start: 20200528, end: 20200528
  13. FOLOTYN [Suspect]
     Active Substance: PRALATREXATE
     Dosage: 24 MILLIGRAM/SQ. METER, DAILY
     Route: 042
     Dates: start: 20201208, end: 20201208
  14. FOLOTYN [Suspect]
     Active Substance: PRALATREXATE
     Dosage: 24 MILLIGRAM/SQ. METER, DAILY
     Route: 042
     Dates: start: 20210202, end: 20210202
  15. FOLOTYN [Suspect]
     Active Substance: PRALATREXATE
     Dosage: 24 MILLIGRAM/SQ. METER, DAILY
     Route: 042
     Dates: start: 20200709, end: 20200709
  16. FOLOTYN [Suspect]
     Active Substance: PRALATREXATE
     Dosage: 24 MILLIGRAM/SQ. METER, DAILY
     Route: 042
     Dates: start: 20210119, end: 20210119
  17. FOLOTYN [Suspect]
     Active Substance: PRALATREXATE
     Dosage: 24 MILLIGRAM/SQ. METER, DAILY
     Route: 042
     Dates: start: 20200625, end: 20200625
  18. FOLOTYN [Suspect]
     Active Substance: PRALATREXATE
     Dosage: 24 MILLIGRAM/SQ. METER, DAILY
     Route: 042
     Dates: start: 20200324, end: 20200324
  19. FOLOTYN [Suspect]
     Active Substance: PRALATREXATE
     Dosage: 24 MILLIGRAM/SQ. METER, DAILY
     Route: 042
     Dates: start: 20200721, end: 20200721
  20. FOLOTYN [Suspect]
     Active Substance: PRALATREXATE
     Dosage: 24 MILLIGRAM/SQ. METER, DAILY
     Route: 042
     Dates: start: 20201013, end: 20201013
  21. FOLOTYN [Suspect]
     Active Substance: PRALATREXATE
     Dosage: 24 MILLIGRAM/SQ. METER, DAILY
     Route: 042
     Dates: start: 20210105, end: 20210105
  22. FOLOTYN [Suspect]
     Active Substance: PRALATREXATE
     Indication: PERIPHERAL T-CELL LYMPHOMA UNSPECIFIED
     Dosage: 24 MILLIGRAM/SQ. METER, DAILY
     Route: 042
     Dates: start: 20200310, end: 20200310
  23. FOLOTYN [Suspect]
     Active Substance: PRALATREXATE
     Dosage: 24 MILLIGRAM/SQ. METER, DAILY
     Route: 042
     Dates: start: 20200407, end: 20200407
  24. FOLOTYN [Suspect]
     Active Substance: PRALATREXATE
     Dosage: 24 MILLIGRAM/SQ. METER, DAILY
     Route: 042
     Dates: start: 20200804, end: 20200804
  25. FOLOTYN [Suspect]
     Active Substance: PRALATREXATE
     Dosage: 24 MILLIGRAM/SQ. METER, DAILY
     Route: 042
     Dates: start: 20200915, end: 20200915
  26. FOLOTYN [Suspect]
     Active Substance: PRALATREXATE
     Dosage: 24 MILLIGRAM/SQ. METER, DAILY
     Route: 042
     Dates: start: 20201027, end: 20201027
  27. FOLOTYN [Suspect]
     Active Substance: PRALATREXATE
     Dosage: 24 MILLIGRAM/SQ. METER, DAILY
     Route: 042
     Dates: start: 20210316

REACTIONS (3)
  - Therapeutic response decreased [Unknown]
  - Malignant neoplasm progression [Unknown]
  - Stomatitis [Recovered/Resolved]

NARRATIVE: CASE EVENT DATE: 20210216
